FAERS Safety Report 9206455 (Version 1)
Quarter: 2013Q2

REPORT INFORMATION
  Report Type: Spontaneous
  Country: US (occurrence: None)
  Receive Date: 20130401
  Receipt Date: 20130401
  Transmission Date: 20140414
  Serious: Yes (Other)
  Sender: FDA-Public Use
  Company Number: 20130145

PATIENT
  Age: 44 Year
  Sex: Female

DRUGS (4)
  1. EPINEPHRINE [Suspect]
     Indication: ANAPHYLACTIC REACTION
     Dosage: 1 MG (1:1000)
  2. DEXAMETHASONE (DEXAMETHASONE) [Concomitant]
  3. SALINE [Concomitant]
  4. ANTIHISTAMINES [Concomitant]

REACTIONS (5)
  - Blood pressure systolic decreased [None]
  - Headache [None]
  - Pulmonary oedema [None]
  - Stress cardiomyopathy [None]
  - Incorrect dose administered [None]
